FAERS Safety Report 6325444-2 (Version None)
Quarter: 2009Q3

REPORT INFORMATION
  Report Type: 
  Country: None (occurrence: None)
  Receive Date: 20090824
  Receipt Date: 20090813
  Transmission Date: 20100115
  Serious: Yes (Other)
  Sender: FDA-Public Use
  Company Number: GB-BAYER-200912704BNE

PATIENT

DRUGS (3)
  1. NEXAVAR [Suspect]
     Indication: RENAL CELL CARCINOMA
     Dates: start: 20070201
  2. NEXAVAR [Suspect]
     Dates: start: 20070101
  3. NEXAVAR [Suspect]

REACTIONS (4)
  - ADVERSE DRUG REACTION [None]
  - BLOOD PRESSURE INCREASED [None]
  - PRURITUS GENERALISED [None]
  - SKIN BURNING SENSATION [None]
